FAERS Safety Report 21070992 (Version 1)
Quarter: 2022Q3

REPORT INFORMATION
  Report Type: Spontaneous
  Country: US (occurrence: None)
  Receive Date: 20220712
  Receipt Date: 20220712
  Transmission Date: 20221026
  Serious: Yes (Other)
  Sender: FDA-Public Use
  Company Number: None

PATIENT
  Age: 56 Year
  Sex: Female
  Weight: 56.25 kg

DRUGS (10)
  1. AVASTIN [Suspect]
     Active Substance: BEVACIZUMAB
     Indication: Ovarian cancer
     Dosage: OTHER FREQUENCY : EVERY 3 WEEKS INFU;?
     Route: 042
     Dates: start: 20220517
  2. LETROZOLE [Concomitant]
     Active Substance: LETROZOLE
  3. HYDROCODONE [Concomitant]
     Active Substance: HYDROCODONE
  4. VITAMIN B12 [Concomitant]
     Active Substance: CYANOCOBALAMIN
  5. D [Concomitant]
  6. women^s daily [Concomitant]
  7. HERBALS\TURMERIC [Concomitant]
     Active Substance: HERBALS\TURMERIC
  8. moringa [Concomitant]
  9. STOOL SOFTENER [Concomitant]
  10. TYLENOL [Concomitant]
     Active Substance: ACETAMINOPHEN

REACTIONS (6)
  - Arthralgia [None]
  - Pain in extremity [None]
  - Pain in extremity [None]
  - Arthralgia [None]
  - Pain in extremity [None]
  - Pain in extremity [None]

NARRATIVE: CASE EVENT DATE: 20220531
